FAERS Safety Report 4576235-4 (Version None)
Quarter: 2005Q1

REPORT INFORMATION
  Report Type: 
  Country: None (occurrence: None)
  Receive Date: 20050207
  Receipt Date: 20050131
  Transmission Date: 20050727
  Serious: Yes (Hospitalization)
  Sender: FDA-Public Use
  Company Number: 200509241

PATIENT
  Age: 55 Year
  Sex: Male

DRUGS (5)
  1. STREPTASE [Suspect]
     Indication: MYOCARDIAL INFARCTION
     Dates: start: 20041122, end: 20041122
  2. ASPIRIN [Suspect]
     Indication: MYOCARDIAL INFARCTION
     Dosage: 100 MG DAILY PO
     Route: 048
     Dates: start: 20041122
  3. ENOXAPARIN SODIUM [Suspect]
     Indication: MYOCARDIAL INFARCTION
     Dosage: IV
     Route: 042
     Dates: start: 20041122
  4. NITRATE [Concomitant]
  5. MORPHINE [Concomitant]

REACTIONS (3)
  - DISEASE RECURRENCE [None]
  - MYOCARDIAL INFARCTION [None]
  - PULMONARY CONGESTION [None]
